FAERS Safety Report 9914558 (Version 3)
Quarter: 2014Q3

REPORT INFORMATION
  Report Type: Report from Study
  Country: LB (occurrence: LB)
  Receive Date: 20140220
  Receipt Date: 20140822
  Transmission Date: 20150326
  Serious: Yes (Other)
  Sender: FDA-Public Use
  Company Number: PHHY2014LB018958

PATIENT
  Age: 89 Year
  Sex: Male

DRUGS (13)
  1. DIOVAN [Concomitant]
     Active Substance: VALSARTAN
     Dosage: 1 DF, DAILY
     Route: 048
     Dates: start: 2000
  2. LESCOL [Concomitant]
     Active Substance: FLUVASTATIN SODIUM
     Dosage: 1 DF, DAILY
     Route: 048
     Dates: start: 2000
  3. CORTANCYL [Concomitant]
     Active Substance: PREDNISONE
     Dosage: 1 DF, DAILY
     Route: 048
     Dates: start: 2000
  4. INDERAL [Concomitant]
     Active Substance: PROPRANOLOL HYDROCHLORIDE
     Dosage: 1 DF, DAILY
     Route: 048
     Dates: start: 2000
  5. PROSCAR [Concomitant]
     Active Substance: FINASTERIDE
     Dosage: 1 DF, DAILY
     Route: 048
  6. LASIX [Concomitant]
     Active Substance: FUROSEMIDE
     Dosage: 1 DF, DAILY
     Route: 048
     Dates: start: 2000
  7. CALCIONATUR [Concomitant]
     Dosage: 1 DF, DAILY
     Route: 048
  8. ZYLORIC [Concomitant]
     Active Substance: ALLOPURINOL
     Dosage: 1 DF, DAILY
     Route: 048
  9. URODOL [Concomitant]
     Dosage: 1 DF, WEEKLY
     Route: 048
  10. LERCADIP [Concomitant]
     Active Substance: LERCANIDIPINE HYDROCHLORIDE
     Dosage: 1 DF, DAILY
     Route: 048
     Dates: start: 2000
  11. AMARYL [Concomitant]
     Active Substance: GLIMEPIRIDE
     Dosage: 1 DF, DAILY
     Route: 048
     Dates: start: 2000
  12. GLIVEC [Suspect]
     Active Substance: IMATINIB MESYLATE
     Indication: CHRONIC MYELOID LEUKAEMIA
     Dosage: 400 MG, DAILY
     Route: 048
     Dates: start: 2004
  13. MINIPRESS [Concomitant]
     Active Substance: PRAZOSIN HYDROCHLORIDE
     Dosage: 1 DF, DAILY
     Route: 048
     Dates: start: 2000

REACTIONS (2)
  - Renal disorder [Recovering/Resolving]
  - Influenza [Recovering/Resolving]

NARRATIVE: CASE EVENT DATE: 201401
